FAERS Safety Report 12221693 (Version 1)
Quarter: 2016Q1

REPORT INFORMATION
  Report Type: Spontaneous
  Country: US (occurrence: US)
  Receive Date: 20160330
  Receipt Date: 20160330
  Transmission Date: 20160526
  Serious: No
  Sender: FDA-Public Use
  Company Number: US-PERRIGO-16US000890

PATIENT
  Age: 29 Year
  Sex: Male
  Weight: 122.45 kg

DRUGS (2)
  1. GOOD SENSE COMPLETE [Suspect]
     Active Substance: CALCIUM CARBONATE\FAMOTIDINE\MAGNESIUM HYDROXIDE
     Indication: DYSPEPSIA
     Dosage: ONE TABLET, 1 TO 2 TIMES DAILY, PRN
     Route: 048
     Dates: start: 201505, end: 201505
  2. GOOD SENSE COMPLETE [Suspect]
     Active Substance: CALCIUM CARBONATE\FAMOTIDINE\MAGNESIUM HYDROXIDE
     Dosage: ONE TABLET, SINGLE
     Route: 048
     Dates: start: 20160128, end: 20160128

REACTIONS (1)
  - Drug effect decreased [Unknown]

NARRATIVE: CASE EVENT DATE: 20160128
